FAERS Safety Report 6925124-6 (Version None)
Quarter: 2010Q3

REPORT INFORMATION
  Report Type: 
  Country: None (occurrence: None)
  Receive Date: 20100816
  Receipt Date: 20100804
  Transmission Date: 20110219
  Serious: Yes (Other)
  Sender: FDA-Public Use
  Company Number: US-PFIZER INC-2010098801

PATIENT
  Sex: Female
  Weight: 82.54 kg

DRUGS (5)
  1. ZOLOFT [Suspect]
     Indication: ANXIETY
     Dosage: 150 MG, 2X/DAY
     Route: 048
  2. ZOLOFT [Suspect]
     Indication: PANIC ATTACK
  3. SERTRALINE HYDROCHLORIDE [Suspect]
     Indication: ANXIETY
     Dosage: UNK
  4. SERTRALINE HYDROCHLORIDE [Suspect]
     Indication: PANIC ATTACK
  5. CHANTIX [Suspect]
     Dosage: UNK

REACTIONS (4)
  - DRUG INEFFECTIVE [None]
  - FATIGUE [None]
  - PANIC ATTACK [None]
  - WEIGHT INCREASED [None]
